FAERS Safety Report 14554460 (Version 1)
Quarter: 2018Q1

REPORT INFORMATION
  Report Type: Spontaneous
  Country: US (occurrence: US)
  Receive Date: 20180218
  Receipt Date: 20180218
  Transmission Date: 20180509
  Serious: Yes (Other)
  Sender: FDA-Public Use
  Company Number: None

PATIENT
  Age: 39 Year
  Sex: Female
  Weight: 46.8 kg

DRUGS (9)
  1. KUDZUVINE ROOT [Concomitant]
     Active Substance: HERBALS
  2. ZINC. [Concomitant]
     Active Substance: ZINC
  3. PROGESTERONE. [Concomitant]
     Active Substance: PROGESTERONE
  4. CIMETIDINE [Concomitant]
     Active Substance: CIMETIDINE
  5. FISH OIL [Concomitant]
     Active Substance: FISH OIL
  6. ASMANEX [Suspect]
     Active Substance: MOMETASONE FUROATE
     Indication: ASTHMA
     Dosage: ?          QUANTITY:1 INHALATION(S);?
     Route: 055
     Dates: start: 20180214, end: 20180215
  7. PROBIOTIC [Concomitant]
     Active Substance: PROBIOTICS NOS
  8. MAGNESIUM [Concomitant]
     Active Substance: MAGNESIUM
  9. COPPER [Concomitant]
     Active Substance: COPPER

REACTIONS (6)
  - Loss of consciousness [None]
  - Hypertension [None]
  - Heart rate increased [None]
  - Asthma [None]
  - Pulse absent [None]
  - Dyspnoea [None]

NARRATIVE: CASE EVENT DATE: 20180216
